FAERS Safety Report 5929295-X (Version None)
Quarter: 2008Q4

REPORT INFORMATION
  Report Type: 
  Country: None (occurrence: None)
  Receive Date: 20081020
  Receipt Date: 20081010
  Transmission Date: 20090506
  Serious: Yes (Other)
  Sender: FDA-Public Use
  Company Number: GXKR2008CH09733

PATIENT
  Age: 65 Year
  Sex: Female

DRUGS (2)
  1. FLUCONAZOLE [Suspect]
     Indication: CANDIDIASIS
     Dosage: 800 MG
  2. SIMVASTATIN [Suspect]
     Indication: HYPERCHOLESTEROLAEMIA
     Dosage: 40 MG

REACTIONS (3)
  - DRUG INTERACTION [None]
  - QUADRIPARESIS [None]
  - RHABDOMYOLYSIS [None]
